FAERS Safety Report 4494845-X (Version None)
Quarter: 2004Q4

REPORT INFORMATION
  Report Type: 
  Country: None (occurrence: None)
  Receive Date: 20041103
  Receipt Date: 20041019
  Transmission Date: 20050328
  Serious: Yes (Other)
  Sender: FDA-Public Use
  Company Number: 105289ISR

PATIENT
  Sex: Female

DRUGS (1)
  1. PREDNISOLONE [Suspect]
     Dosage: ORAL
     Route: 048

REACTIONS (3)
  - BLINDNESS [None]
  - CONFUSIONAL STATE [None]
  - HEADACHE [None]
